FAERS Safety Report 7922258 (Version 3)
Quarter: 2013Q1

REPORT INFORMATION
  Report Type: Spontaneous
  Country: US (occurrence: US)
  Receive Date: 20110429
  Receipt Date: 20130325
  Transmission Date: 20140127
  Serious: No
  Sender: FDA-Public Use
  Company Number: US-ASTRAZENECA-2011SE08071

PATIENT
  Age: 95 Year
  Sex: Female

DRUGS (2)
  1. NEXIUM [Suspect]
     Route: 048
  2. CRESTOR [Suspect]
     Route: 048

REACTIONS (5)
  - Movement disorder [Unknown]
  - Hypoacusis [Unknown]
  - Cataract [Unknown]
  - Abasia [Unknown]
  - Visual impairment [Unknown]
